FAERS Safety Report 19047292 (Version 2)
Quarter: 2021Q2

REPORT INFORMATION
  Report Type: Report from Study
  Country: PL (occurrence: PL)
  Receive Date: 20210323
  Receipt Date: 20210415
  Transmission Date: 20210717
  Serious: Yes (Life-Threatening, Hospitalization)
  Sender: FDA-Public Use
  Company Number: PL-PFIZER INC-2020158294

PATIENT
  Age: 76 Year
  Sex: Male
  Weight: 95 kg

DRUGS (4)
  1. ENZALUTAMIDE [Suspect]
     Active Substance: ENZALUTAMIDE
     Indication: PROSTATE CANCER METASTATIC
     Dosage: 160 MG, DAILY (4 TABL. DAILY)
     Route: 048
     Dates: start: 20200107, end: 20200407
  2. INSULATARD [INSULIN HUMAN INJECTION, ISOPHANE] [Concomitant]
     Active Substance: INSULIN HUMAN
     Indication: DIABETES MELLITUS
     Dosage: 28 1X1, 1X/DAY, INSULATARD 28, MOST RECENT DOSE DATE 16APR2020
     Route: 058
     Dates: start: 2016
  3. TALAZOPARIB. [Suspect]
     Active Substance: TALAZOPARIB
     Indication: PROSTATE CANCER METASTATIC
     Dosage: 1X/DAILY
     Route: 048
     Dates: start: 20200107, end: 20200417
  4. NOVORAPID [Concomitant]
     Active Substance: INSULIN ASPART
     Indication: DIABETES MELLITUS
     Dosage: 3X12, 3X/DAY, MOST RECENT DOSE DATE 16APR2020
     Route: 058
     Dates: start: 2016

REACTIONS (1)
  - Anaemia [Recovered/Resolved]

NARRATIVE: CASE EVENT DATE: 20200414
